FAERS Safety Report 14816182 (Version 2)
Quarter: 2018Q2

REPORT INFORMATION
  Report Type: Spontaneous
  Country: GB (occurrence: GB)
  Receive Date: 20180426
  Receipt Date: 20180615
  Transmission Date: 20180711
  Serious: Yes (Other)
  Sender: FDA-Public Use
  Company Number: GB-TEVA-2018-GB-887034

PATIENT
  Age: 9 Year
  Sex: Male
  Weight: 40 kg

DRUGS (1)
  1. PREDNISOLONE. [Suspect]
     Active Substance: PREDNISOLONE
     Indication: ASTHMA
     Dosage: DAY 10MG PRESCRIBED DAILY. GIVEN 10MG PER ML FOR HOME. GIVEN 10X DOSE BY ACCIDENT,
     Route: 048

REACTIONS (3)
  - Adrenal insufficiency [Recovering/Resolving]
  - Accidental overdose [Unknown]
  - Drug dispensing error [Unknown]
